FAERS Safety Report 9221724 (Version 1)
Quarter: 2013Q2

REPORT INFORMATION
  Report Type: Spontaneous
  Country: JP (occurrence: JP)
  Receive Date: 20130410
  Receipt Date: 20130410
  Transmission Date: 20140414
  Serious: Yes (Other)
  Sender: FDA-Public Use
  Company Number: JP-RANBAXY-2013R1-67196

PATIENT
  Age: 74 Year
  Sex: Male

DRUGS (1)
  1. TRIAMCINOLONE [Suspect]
     Indication: UVEITIS
     Dosage: UNK
     Route: 050

REACTIONS (1)
  - Cytomegalovirus chorioretinitis [Recovered/Resolved]
